FAERS Safety Report 9765739 (Version 1)
Quarter: 2013Q4

REPORT INFORMATION
  Report Type: Spontaneous
  Country: US (occurrence: US)
  Receive Date: 20131217
  Receipt Date: 20131217
  Transmission Date: 20140711
  Serious: No
  Sender: FDA-Public Use
  Company Number: US-GLAXOSMITHKLINE-A1011145A

PATIENT
  Age: 72 Year
  Sex: Male

DRUGS (1)
  1. VOTRIENT [Suspect]
     Indication: RENAL CANCER
     Dosage: 200MG SEE DOSAGE TEXT
     Route: 065

REACTIONS (7)
  - Rash generalised [Not Recovered/Not Resolved]
  - Rash [Unknown]
  - Abdominal pain upper [Unknown]
  - Diarrhoea [Unknown]
  - Skin haemorrhage [Unknown]
  - Fatigue [Unknown]
  - Decreased appetite [Unknown]
